FAERS Safety Report 18769127 (Version 2)
Quarter: 2021Q2

REPORT INFORMATION
  Report Type: Report from Study
  Country: CA (occurrence: CA)
  Receive Date: 20210121
  Receipt Date: 20210518
  Transmission Date: 20210717
  Serious: Yes (Other)
  Sender: FDA-Public Use
  Company Number: PHHY2014CA042482

PATIENT
  Age: 57 Year
  Sex: Female

DRUGS (5)
  1. SANDOSTATIN LAR DEPOT [Suspect]
     Active Substance: OCTREOTIDE ACETATE
     Dosage: 40 MG, QMO (EVERY 4 WEEKS)
     Route: 030
     Dates: start: 20180424
  2. SANDOSTATIN LAR DEPOT [Suspect]
     Active Substance: OCTREOTIDE ACETATE
     Dosage: 40 MG, QMO (EVERY 4 WEEKS)
     Route: 030
     Dates: start: 20191022
  3. SANDOSTATIN LAR DEPOT [Suspect]
     Active Substance: OCTREOTIDE ACETATE
     Indication: NEUROENDOCRINE TUMOUR
     Dosage: 40 MG, QMO (EVERY 4 WEEKS)
     Route: 030
     Dates: start: 20130723
  4. SANDOSTATIN LAR DEPOT [Suspect]
     Active Substance: OCTREOTIDE ACETATE
     Dosage: 30 MG, QMO
     Route: 030
     Dates: end: 20170509
  5. SANDOSTATIN LAR DEPOT [Suspect]
     Active Substance: OCTREOTIDE ACETATE
     Dosage: 40 MG, QMO
     Route: 030
     Dates: start: 20170606

REACTIONS (21)
  - Metastases to liver [Unknown]
  - Blood iron decreased [Unknown]
  - Oropharyngeal discomfort [Unknown]
  - Metastases to diaphragm [Unknown]
  - Neoplasm [Unknown]
  - Tinnitus [Unknown]
  - Neuroendocrine tumour [Unknown]
  - Pelvic fluid collection [Unknown]
  - Deafness [Recovering/Resolving]
  - Hormone level abnormal [Unknown]
  - Injection site mass [Recovered/Resolved]
  - Malignant neoplasm progression [Unknown]
  - Weight increased [Unknown]
  - Night sweats [Not Recovered/Not Resolved]
  - Injection site rash [Recovered/Resolved]
  - Needle issue [Unknown]
  - Hot flush [Not Recovered/Not Resolved]
  - Rash [Recovering/Resolving]
  - Alopecia [Recovered/Resolved]
  - Aphonia [Unknown]
  - Abdominal pain upper [Unknown]

NARRATIVE: CASE EVENT DATE: 2016
